FAERS Safety Report 8354444-6 (Version None)
Quarter: 2012Q2

REPORT INFORMATION
  Report Type: 
  Country: None (occurrence: None)
  Receive Date: 20120511
  Receipt Date: 20120427
  Transmission Date: 20120825
  Serious: Yes (Other)
  Sender: FDA-Public Use
  Company Number: SE-ROCHE-1054203

PATIENT
  Weight: 100 kg

DRUGS (4)
  1. ACTEMRA [Suspect]
     Indication: RHEUMATOID ARTHRITIS
     Dosage: TOTAL NUMBER OF CYCLE RECEIVED AT THE TIME OF EVENT ONSET: 14
     Route: 042
     Dates: start: 20101001, end: 20111201
  2. PREDNISOLONE [Concomitant]
     Indication: RHEUMATOID ARTHRITIS
     Dosage: DOSING+FREQUENCY: 5MG X1
     Route: 048
     Dates: start: 20070301
  3. METHOTREXATE [Concomitant]
     Indication: RHEUMATOID ARTHRITIS
     Route: 048
     Dates: start: 20070601
  4. METHOTREXATE [Concomitant]
     Dosage: DOSE AT THE TIME OF EVENT ONSET
     Route: 048
     Dates: start: 20070601

REACTIONS (2)
  - LACUNAR INFARCTION [None]
  - VASCULITIS CEREBRAL [None]
